FAERS Safety Report 8639757 (Version 5)
Quarter: 2014Q1

REPORT INFORMATION
  Report Type: Spontaneous
  Country: US (occurrence: US)
  Receive Date: 20120628
  Receipt Date: 20140304
  Transmission Date: 20141002
  Serious: Yes (Hospitalization)
  Sender: FDA-Public Use
  Company Number: US-BIOGENIDEC-2012BI022268

PATIENT
  Age: 48 Year
  Sex: Female

DRUGS (10)
  1. TYSABRI [Suspect]
     Indication: MULTIPLE SCLEROSIS
     Route: 042
     Dates: start: 20110824, end: 20131230
  2. TYLENOL [Concomitant]
  3. ZOLOFT [Concomitant]
     Indication: DEPRESSION
  4. ALLEGRA [Concomitant]
     Indication: MULTIPLE ALLERGIES
  5. LASIX [Concomitant]
     Indication: OEDEMA
  6. MAXALT [Concomitant]
     Indication: HEADACHE
  7. FOLIC ACID [Concomitant]
  8. VITAMIN D [Concomitant]
  9. PRILOSEC [Concomitant]
     Indication: GASTROOESOPHAGEAL REFLUX DISEASE
  10. CRESTOR [Concomitant]
     Indication: HYPERCHOLESTEROLAEMIA

REACTIONS (5)
  - Myelofibrosis [Recovered/Resolved]
  - Autoimmune haemolytic anaemia [Unknown]
  - Red blood cell count decreased [Recovered/Resolved]
  - Loss of consciousness [Recovered/Resolved]
  - Bedridden [Not Recovered/Not Resolved]
